FAERS Safety Report 8337978-X (Version None)
Quarter: 2012Q2

REPORT INFORMATION
  Report Type: 
  Country: None (occurrence: None)
  Receive Date: 20120504
  Receipt Date: 20120427
  Transmission Date: 20120825
  Serious: Yes (Other)
  Sender: FDA-Public Use
  Company Number: US-JNJFOC-20120413080

PATIENT

DRUGS (2)
  1. SIMPONI [Suspect]
     Indication: PRODUCT USED FOR UNKNOWN INDICATION
     Route: 058
     Dates: start: 20100301
  2. SIMPONI [Suspect]
     Route: 058
     Dates: start: 20110322

REACTIONS (1)
  - SKIN CANCER [None]
